FAERS Safety Report 19106737 (Version 5)
Quarter: 2021Q3

REPORT INFORMATION
  Report Type: Spontaneous
  Country: JP (occurrence: JP)
  Receive Date: 20210408
  Receipt Date: 20210910
  Transmission Date: 20211014
  Serious: Yes (Disabling, Other)
  Sender: FDA-Public Use
  Company Number: NVSJ2021JP002781

PATIENT
  Age: 75 Year
  Sex: Male

DRUGS (3)
  1. BEOVU [Suspect]
     Active Substance: BROLUCIZUMAB-DBLL
     Dosage: 6 MG
     Route: 031
     Dates: start: 20210212, end: 20210212
  2. NEVANAC [Suspect]
     Active Substance: NEPAFENAC
     Indication: EYE INFLAMMATION
     Dosage: 1 DRP
     Route: 047
     Dates: start: 202011, end: 20210213
  3. BEOVU [Suspect]
     Active Substance: BROLUCIZUMAB-DBLL
     Indication: AGE-RELATED MACULAR DEGENERATION
     Dosage: 6 MG
     Route: 031
     Dates: start: 20210112, end: 20210112

REACTIONS (9)
  - Anterior chamber inflammation [Not Recovered/Not Resolved]
  - Iritis [Unknown]
  - Retinal vasculitis [Recovered/Resolved]
  - Retinal haemorrhage [Recovered/Resolved]
  - Anterior chamber inflammation [Recovered/Resolved]
  - Vitreal cells [Recovered/Resolved]
  - Anterior chamber flare [Recovered/Resolved]
  - Anterior chamber fibrin [Unknown]
  - Intraocular pressure increased [Unknown]

NARRATIVE: CASE EVENT DATE: 20210213
